FAERS Safety Report 6054014-9 (Version None)
Quarter: 2009Q1

REPORT INFORMATION
  Report Type: 
  Country: None (occurrence: None)
  Receive Date: 20090127
  Receipt Date: 20090115
  Transmission Date: 20090719
  Serious: Yes (Hospitalization, Other)
  Sender: FDA-Public Use
  Company Number: US-PFIZER INC-2008070409

PATIENT
  Sex: Female

DRUGS (7)
  1. DILANTIN [Suspect]
  2. DILANTIN [Suspect]
  3. PHOSLO [Concomitant]
  4. LASIX [Concomitant]
  5. CLONIDINE [Concomitant]
  6. FLOVENT [Concomitant]
  7. ALBUTEROL SULATE [Concomitant]

REACTIONS (13)
  - CONVULSION [None]
  - DEEP VEIN THROMBOSIS [None]
  - ENDOCARDITIS [None]
  - HYPOTENSION [None]
  - MYOCARDIAL ISCHAEMIA [None]
  - PNEUMONIA [None]
  - PULMONARY MASS [None]
  - SEPSIS [None]
  - SLEEP APNOEA SYNDROME [None]
  - STEVENS-JOHNSON SYNDROME [None]
  - TACHYCARDIA [None]
  - THROMBOCYTOPENIA [None]
  - VENA CAVA THROMBOSIS [None]
